FAERS Safety Report 9707854 (Version 7)
Quarter: 2014Q2

REPORT INFORMATION
  Report Type: Spontaneous
  Country: US (occurrence: US)
  Receive Date: 20131125
  Receipt Date: 20140424
  Transmission Date: 20141212
  Serious: Yes (Hospitalization, Other)
  Sender: FDA-Public Use
  Company Number: US-009507513-1203USA01082

PATIENT
  Sex: Male
  Weight: 89.34 kg

DRUGS (6)
  1. FOSAMAX [Suspect]
     Indication: OSTEOPOROSIS
     Dosage: 70 MG, QW
     Route: 048
     Dates: start: 1995, end: 2008
  2. FOSAMAX [Suspect]
     Indication: OSTEOPENIA
  3. CENTRUM SILVER [Concomitant]
     Indication: PROPHYLAXIS
     Dosage: UNK
     Route: 048
     Dates: start: 1990
  4. ALENDRONATE SODIUM [Suspect]
     Indication: OSTEOPOROSIS
     Dosage: 70 MG, QW
     Route: 048
     Dates: start: 20081006
  5. METHOTREXATE [Concomitant]
     Indication: RHEUMATOID ARTHRITIS
     Dosage: 10 MG, QW
     Route: 048
  6. REMICADE [Concomitant]
     Indication: RHEUMATOID ARTHRITIS
     Dosage: 300 MG, Q 5 WEEKS
     Route: 041

REACTIONS (60)
  - Femur fracture [Unknown]
  - Intramedullary rod insertion [Unknown]
  - Medical device removal [Unknown]
  - Immunoblastic lymphoma [Unknown]
  - Knee arthroplasty [Unknown]
  - Knee arthroplasty [Recovered/Resolved]
  - Tibia fracture [Unknown]
  - Internal fixation of fracture [Unknown]
  - Hip fracture [Unknown]
  - Hip arthroplasty [Unknown]
  - Hip arthroplasty [Unknown]
  - Deafness [Unknown]
  - Pneumonia [Recovered/Resolved]
  - Fall [Unknown]
  - Haemorrhagic anaemia [Unknown]
  - Chest pain [Unknown]
  - Bundle branch block left [Unknown]
  - Colectomy [Unknown]
  - Arthrodesis [Unknown]
  - Spinal fusion surgery [Unknown]
  - Atrioventricular block first degree [Unknown]
  - Cardiomegaly [Unknown]
  - Fluid overload [Unknown]
  - Explorative laparotomy [Unknown]
  - Pain in extremity [Recovering/Resolving]
  - Colitis ischaemic [Unknown]
  - Tonsillectomy [Unknown]
  - Anaemia of chronic disease [Unknown]
  - Hyperlipidaemia [Unknown]
  - Dental operation [Unknown]
  - Diplopia [Unknown]
  - Benign prostatic hyperplasia [Unknown]
  - Low turnover osteopathy [Unknown]
  - Dry skin [Unknown]
  - Vocal cord disorder [Unknown]
  - Vocal cord thickening [Unknown]
  - Dermatitis atopic [Unknown]
  - Cardiomyopathy [Unknown]
  - Interstitial lung disease [Not Recovered/Not Resolved]
  - Chronic obstructive pulmonary disease [Not Recovered/Not Resolved]
  - Lung infiltration [Unknown]
  - Gait disturbance [Unknown]
  - Dysphonia [Unknown]
  - Hypertension [Unknown]
  - Insomnia [Unknown]
  - Sleep apnoea syndrome [Unknown]
  - Cardiac assistance device user [Unknown]
  - Dental caries [Unknown]
  - Pulmonary hilum mass [Unknown]
  - Cerumen impaction [Unknown]
  - Oedema peripheral [Unknown]
  - Bronchial hyperreactivity [Unknown]
  - Atrioventricular block complete [Unknown]
  - Arthritis [Unknown]
  - Pain in extremity [Unknown]
  - Pruritus [Not Recovered/Not Resolved]
  - Constipation [Unknown]
  - Drug ineffective [Unknown]
  - Drug ineffective [Unknown]
  - Gastrooesophageal reflux disease [Unknown]
